FAERS Safety Report 8896021 (Version 1)
Quarter: 2012Q4

REPORT INFORMATION
  Report Type: 
  Country: IT (occurrence: IT)
  Receive Date: 20121108
  Receipt Date: 20121108
  Transmission Date: 20130627
  Serious: Yes (Hospitalization, Other)
  Sender: FDA-Public Use
  Company Number: IT-ROCHE-785490

PATIENT
  Age: 57 Year
  Sex: Male

DRUGS (1)
  1. ROACTEMRA [Suspect]
     Indication: RHEUMATOID ARTHRITIS
     Route: 042
     Dates: start: 20100706, end: 20100830

REACTIONS (3)
  - Abscess bacterial [Recovering/Resolving]
  - Lung abscess [Recovering/Resolving]
  - Haemoptysis [Recovering/Resolving]
